FAERS Safety Report 6393313-8 (Version None)
Quarter: 2009Q4

REPORT INFORMATION
  Report Type: 
  Country: None (occurrence: None)
  Receive Date: 20091008
  Receipt Date: 20090929
  Transmission Date: 20100525
  Serious: Yes (Hospitalization, Other)
  Sender: FDA-Public Use
  Company Number: PHEH2009US12486

PATIENT
  Sex: Male

DRUGS (4)
  1. CLOZARIL [Suspect]
     Dosage: UNK
  2. CLOZARIL [Suspect]
     Dosage: NO TREATMENT
  3. CLOZARIL [Suspect]
     Dosage: UNK
     Dates: start: 20080101
  4. CLOZARIL [Suspect]
     Dosage: NO TREATMENT FOR 24-48 HRS

REACTIONS (3)
  - COLON CANCER [None]
  - HALLUCINATION [None]
  - WHITE BLOOD CELL COUNT DECREASED [None]
